FAERS Safety Report 8201431-4 (Version None)
Quarter: 2012Q1

REPORT INFORMATION
  Report Type: 
  Country: None (occurrence: None)
  Receive Date: 20120307
  Receipt Date: 20120227
  Transmission Date: 20120608
  Serious: Yes (Life-Threatening, Hospitalization, Other)
  Sender: FDA-Public Use
  Company Number: 08-AUR-04924

PATIENT
  Age: 65 Year
  Sex: Male
  Weight: 80 kg

DRUGS (17)
  1. METHYLENE BLUE (METHYLTHIONINIUM CHLORIDE) [Suspect]
     Indication: PRODUCT USED FOR UNKNOWN INDICATION
     Dosage: (650 MG, 1 D), UNKNOWN
     Dates: start: 20050722, end: 20050722
  2. CLOPIDOGREL [Concomitant]
  3. ALUMINIUM HYDROXIDE (ALUMINIUM HYDROXIDE) [Concomitant]
  4. MORPHINE [Concomitant]
  5. ALFACALCIDOL (ALFACALCIDOL) [Concomitant]
  6. FENTANYL [Concomitant]
  7. INSULIN (INSULIN?)? [Concomitant]
  8. PROPOFOL [Concomitant]
  9. QUININE SULFATE [Concomitant]
  10. REMIFENTANIL (REMIFENTANIL) [Concomitant]
  11. SILDENAFIL CITRATE [Concomitant]
  12. ATORVASTATIN [Concomitant]
  13. CITALOPRAM HYDROBROMIDE [Concomitant]
  14. OMEPRAZOLE (OMEPRAZOLE) (ONEPRAZOLE) [Concomitant]
  15. CITALOPRAM HYDROBROMIDE [Suspect]
     Dosage: (10 MG) , UNKNOWN
  16. ATRACURIUM BESYLATE [Concomitant]
  17. SEVOFLURANE (SEROFLURANE) [Concomitant]

REACTIONS (25)
  - SEROTONIN SYNDROME [None]
  - BUNDLE BRANCH BLOCK LEFT [None]
  - SINUS TACHYCARDIA [None]
  - EXTRASYSTOLES [None]
  - HYPERPYREXIA [None]
  - AGITATION [None]
  - HYPERCAPNIA [None]
  - HAEMODIALYSIS [None]
  - ELECTROCARDIOGRAM ST SEGMENT DEPRESSION [None]
  - DEPRESSED LEVEL OF CONSCIOUSNESS [None]
  - CHILLS [None]
  - TREMOR [None]
  - ENCEPHALOPATHY [None]
  - TOXICITY TO VARIOUS AGENTS [None]
  - HYPERTENSION [None]
  - CARDIAC DISORDER [None]
  - DISORIENTATION [None]
  - PYREXIA [None]
  - ACIDOSIS [None]
  - HYPERKALAEMIA [None]
  - VOMITING [None]
  - HYPERHIDROSIS [None]
  - DRUG INTERACTION [None]
  - BLOOD POTASSIUM INCREASED [None]
  - LOWER RESPIRATORY TRACT INFECTION [None]
